FAERS Safety Report 22633941 (Version 1)
Quarter: 2023Q2

REPORT INFORMATION
  Report Type: Spontaneous
  Country: US (occurrence: None)
  Receive Date: 20230620
  Receipt Date: 20230620
  Transmission Date: 20230722
  Serious: No
  Sender: FDA-Public Use
  Company Number: None

PATIENT
  Sex: Female

DRUGS (16)
  1. CYCLOSPORINE [Suspect]
     Active Substance: CYCLOSPORINE
     Indication: Plasma cell myeloma
     Dosage: FREQUENCY : DAILY; DAY 1,8,15 22 ND OF 28 CYCLE?
     Route: 048
  2. ZOFRAN [Concomitant]
     Active Substance: ONDANSETRON HYDROCHLORIDE
  3. VENLAFAXINE HYDROCHLORIDE [Concomitant]
     Active Substance: VENLAFAXINE HYDROCHLORIDE
  4. TRAZODONE [Concomitant]
     Active Substance: TRAZODONE HYDROCHLORIDE
  5. RIZATRIPTAN [Concomitant]
     Active Substance: RIZATRIPTAN
  6. PEPCID [Concomitant]
     Active Substance: FAMOTIDINE
  7. MIRTAZAPINE [Concomitant]
     Active Substance: MIRTAZAPINE
  8. MIRALAX [Concomitant]
     Active Substance: POLYETHYLENE GLYCOL 3350
  9. METAMUCIL [Concomitant]
     Active Substance: PLANTAGO SEED
  10. LYRICA [Concomitant]
     Active Substance: PREGABALIN
  11. LAMICTAL [Concomitant]
     Active Substance: LAMOTRIGINE
  12. ELIQUIS [Concomitant]
     Active Substance: APIXABAN
  13. DOCUSATE [Concomitant]
     Active Substance: DOCUSATE
  14. DILTIAZEM [Concomitant]
     Active Substance: DILTIAZEM
  15. CLONAZEPAM [Concomitant]
     Active Substance: CLONAZEPAM
  16. ATORVASTATIN [Concomitant]
     Active Substance: ATORVASTATIN

REACTIONS (1)
  - Hospice care [None]
